FAERS Safety Report 5954187-X (Version None)
Quarter: 2008Q4

REPORT INFORMATION
  Report Type: 
  Country: None (occurrence: None)
  Receive Date: 20081117
  Receipt Date: 20081106
  Transmission Date: 20090506
  Serious: Yes (Hospitalization)
  Sender: FDA-Public Use
  Company Number: US-JNJFOC-20081101912

PATIENT

DRUGS (5)
  1. REMICADE [Suspect]
     Route: 042
  2. REMICADE [Suspect]
     Route: 042
  3. REMICADE [Suspect]
     Indication: RHEUMATOID ARTHRITIS
     Route: 042
  4. BENADRYL [Concomitant]
     Indication: PREMEDICATION
  5. TYLENOL (CAPLET) [Concomitant]
     Indication: PREMEDICATION

REACTIONS (7)
  - BACK PAIN [None]
  - DYSPNOEA [None]
  - HYPERHIDROSIS [None]
  - INFLUENZA LIKE ILLNESS [None]
  - INFUSION RELATED REACTION [None]
  - PALPITATIONS [None]
  - THROAT IRRITATION [None]
